FAERS Safety Report 5221467-5 (Version None)
Quarter: 2007Q1

REPORT INFORMATION
  Report Type: 
  Country: None (occurrence: None)
  Receive Date: 20070126
  Receipt Date: 20070116
  Transmission Date: 20070707
  Serious: Yes (Hospitalization)
  Sender: FDA-Public Use
  Company Number: FR-PFIZER INC-2007004941

PATIENT
  Age: 53 Year
  Sex: Female

DRUGS (4)
  1. LYRICA [Suspect]
     Route: 048
     Dates: start: 20061105, end: 20061216
  2. LEVETIRACETAM [Suspect]
     Route: 048
     Dates: start: 20061108, end: 20061209
  3. METFORMIN HCL [Concomitant]
  4. REPAGLINIDE [Concomitant]

REACTIONS (1)
  - RASH PAPULAR [None]
